FAERS Safety Report 25744037 (Version 1)
Quarter: 2025Q3

REPORT INFORMATION
  Report Type: Report from Study
  Country: CA (occurrence: CA)
  Receive Date: 20250831
  Receipt Date: 20250831
  Transmission Date: 20251020
  Serious: Yes (Other)
  Sender: ABBVIE
  Company Number: CA-ABBVIE-6437186

PATIENT
  Sex: Male

DRUGS (1)
  1. LUPRON [Suspect]
     Active Substance: LEUPROLIDE ACETATE
     Indication: Prostate cancer
     Dosage: IM INJECTION Q4MONTHS
     Route: 030
     Dates: start: 20231027

REACTIONS (4)
  - Metastases to lung [Unknown]
  - Wheelchair user [Unknown]
  - Dysphonia [Unknown]
  - Asthenia [Unknown]
